FAERS Safety Report 4644865-7 (Version None)
Quarter: 2005Q2

REPORT INFORMATION
  Report Type: 
  Country: None (occurrence: None)
  Receive Date: 20050422
  Receipt Date: 20050411
  Transmission Date: 20051028
  Serious: Yes (Death, Hospitalization)
  Sender: FDA-Public Use
  Company Number: 2005056901

PATIENT
  Age: 75 Year
  Sex: Female

DRUGS (2)
  1. DILANTIN [Suspect]
     Indication: CONVULSION
     Dosage: 400 MG (200 MG, 2 IN 1 D), ORAL
     Route: 048
     Dates: start: 20051105, end: 20050107
  2. TEMOZOLOMIDE (TEMOZOLOMIDE) [Suspect]
     Indication: GLIOBLASTOMA MULTIFORME
     Dosage: 120 MG (1 IN 1 D), ORAL
     Route: 048
     Dates: start: 20041208, end: 20050107

REACTIONS (2)
  - PANCYTOPENIA [None]
  - STAPHYLOCOCCAL SEPSIS [None]
